FAERS Safety Report 21999487 (Version 1)
Quarter: 2023Q1

REPORT INFORMATION
  Report Type: Spontaneous
  Country: US (occurrence: None)
  Receive Date: 20230215
  Receipt Date: 20230215
  Transmission Date: 20230417
  Serious: Yes (Death)
  Sender: FDA-Public Use
  Company Number: None

PATIENT
  Sex: Male

DRUGS (1)
  1. PANTOPRAZOLE SODIUM [Suspect]
     Active Substance: PANTOPRAZOLE SODIUM

REACTIONS (6)
  - Hyperhidrosis [None]
  - Asthenopia [None]
  - Tremor [None]
  - Unevaluable event [None]
  - Pulse absent [None]
  - Feeling cold [None]

NARRATIVE: CASE EVENT DATE: 20221021
